FAERS Safety Report 15014219 (Version 1)
Quarter: 2018Q2

REPORT INFORMATION
  Report Type: Spontaneous
  Country: CN (occurrence: CN)
  Receive Date: 20180615
  Receipt Date: 20180615
  Transmission Date: 20180711
  Serious: Yes (Other)
  Sender: FDA-Public Use
  Company Number: CN-ROCHE-2138341

PATIENT
  Age: 53 Year
  Sex: Female

DRUGS (4)
  1. OXALIPLATIN. [Suspect]
     Active Substance: OXALIPLATIN
     Indication: RECTAL CANCER
     Dosage: D1
     Route: 065
     Dates: start: 20161128
  2. AVASTIN [Suspect]
     Active Substance: BEVACIZUMAB
     Route: 065
     Dates: start: 20170412
  3. XELODA [Suspect]
     Active Substance: CAPECITABINE
     Indication: RECTAL CANCER
     Dosage: D1-D14
     Route: 048
     Dates: start: 20161128
  4. AVASTIN [Suspect]
     Active Substance: BEVACIZUMAB
     Indication: RECTAL CANCER
     Dosage: D1
     Route: 065
     Dates: start: 20161128, end: 20170310

REACTIONS (4)
  - Bone marrow failure [Unknown]
  - Gastrointestinal disorder [Unknown]
  - Neurotoxicity [Unknown]
  - Platelet count decreased [Unknown]
